FAERS Safety Report 5242718-7 (Version None)
Quarter: 2007Q1

REPORT INFORMATION
  Report Type: 
  Country: None (occurrence: None)
  Receive Date: 20070221
  Receipt Date: 20070219
  Transmission Date: 20070707
  Serious: Yes (Other)
  Sender: FDA-Public Use
  Company Number: US-GLAXOSMITHKLINE-A0640107A

PATIENT
  Age: 41 Year
  Sex: Female

DRUGS (3)
  1. WELLBUTRIN [Suspect]
     Indication: DEPRESSION
     Route: 048
  2. AMPHETAMINES [Concomitant]
  3. SLEEPING PILL [Concomitant]

REACTIONS (3)
  - INSOMNIA [None]
  - LOSS OF CONSCIOUSNESS [None]
  - MOOD SWINGS [None]
